FAERS Safety Report 4814715-4 (Version None)
Quarter: 2005Q4

REPORT INFORMATION
  Report Type: 
  Country: None (occurrence: None)
  Receive Date: 20051028
  Receipt Date: 20041215
  Transmission Date: 20060501
  Serious: No
  Sender: FDA-Public Use
  Company Number: 273-70-8285

PATIENT
  Age: 39 Year
  Sex: Female
  Weight: 71.4 kg

DRUGS (3)
  1. ADVAIR DISKUS 100/50 [Suspect]
     Indication: ASTHMA
     Dosage: 1PUFF TWICE PER DAY
     Route: 055
  2. SINGULAIR [Concomitant]
     Dosage: 1TAB PER DAY
     Route: 048
  3. CHLORPHENIRAMINE MALEATE AND PSEUDOEPHEDRINE HCL [Concomitant]
     Dosage: 1CAP PER DAY
     Route: 048

REACTIONS (1)
  - DYSPNOEA [None]
